FAERS Safety Report 9507564 (Version 1)
Quarter: 2013Q1

REPORT INFORMATION
  Report Type: Spontaneous
  Country: US (occurrence: None)
  Receive Date: 20130305
  Receipt Date: 20130305
  Transmission Date: 20140127
  Serious: Yes (Other)
  Sender: FDA-Public Use
  Company Number: 163-21880-12052717

PATIENT
  Age: 63 Year
  Sex: Male

DRUGS (1)
  1. REVLIMID [Suspect]
     Indication: PLASMA CELL MYELOMA
     Dosage: 10 MG, QD X 21 DAYS, PO?01/2012 - DISCONTINUED
     Route: 048
     Dates: start: 201201

REACTIONS (3)
  - Drug ineffective [None]
  - Monoclonal immunoglobulin present [None]
  - Condition aggravated [None]
